FAERS Safety Report 7034264-5 (Version None)
Quarter: 2010Q4

REPORT INFORMATION
  Report Type: 
  Country: None (occurrence: None)
  Receive Date: 20101008
  Receipt Date: 20100929
  Transmission Date: 20110411
  Serious: Yes (Hospitalization)
  Sender: FDA-Public Use
  Company Number: DE-ABBOTT-10P-062-0672971-00

PATIENT
  Sex: Male
  Weight: 98 kg

DRUGS (3)
  1. HUMIRA [Suspect]
     Indication: PSORIATIC ARTHROPATHY
     Route: 058
     Dates: start: 20100329, end: 20100917
  2. BEGRIVAC [Suspect]
     Indication: ANTIVIRAL PROPHYLAXIS
     Route: 030
     Dates: start: 20100918, end: 20100918
  3. ARAVA [Concomitant]
     Indication: PRODUCT USED FOR UNKNOWN INDICATION

REACTIONS (8)
  - DERMATITIS BULLOUS [None]
  - INFLUENZA LIKE ILLNESS [None]
  - LUNG DISORDER [None]
  - MUSCULOSKELETAL PAIN [None]
  - NOCTURIA [None]
  - SKIN DISORDER [None]
  - SKIN EXFOLIATION [None]
  - TOXIC EPIDERMAL NECROLYSIS [None]
